FAERS Safety Report 10070278 (Version 1)
Quarter: 2014Q2

REPORT INFORMATION
  Report Type: Spontaneous
  Country: US (occurrence: None)
  Receive Date: 20140408
  Receipt Date: 20140408
  Transmission Date: 20141212
  Serious: Yes (Life-Threatening, Other)
  Sender: FDA-Public Use
  Company Number: SYM-2014-19026

PATIENT
  Age: 65 Year
  Sex: Female

DRUGS (4)
  1. WELLBUTRIN (BUPOPION HYDROCHLORIDE) [Suspect]
     Indication: DEPRESSION
     Route: 048
     Dates: start: 20010816
  2. WELLBUTRIN (BUPOPION HYDROCHLORIDE) [Suspect]
     Indication: DEPRESSION
     Route: 048
     Dates: start: 20010816
  3. WELLBUTRIN (BUPOPION HYDROCHLORIDE) [Suspect]
     Indication: AFFECTIVE DISORDER
     Route: 048
     Dates: start: 20010816
  4. CELEXA (CITALOPRAM HYDROBROMIDE) [Concomitant]

REACTIONS (1)
  - Renal failure [None]
